FAERS Safety Report 7981307-8 (Version None)
Quarter: 2011Q4

REPORT INFORMATION
  Report Type: 
  Country: None (occurrence: None)
  Receive Date: 20111212
  Receipt Date: 20111130
  Transmission Date: 20120403
  Serious: Yes (Life-Threatening, Hospitalization)
  Sender: FDA-Public Use
  Company Number: 1041841

PATIENT
  Age: 34 Year
  Sex: Female
  Weight: 65.5 kg

DRUGS (9)
  1. VOGALENE [Suspect]
     Indication: PRODUCT USED FOR UNKNOWN INDICATION
  2. CYTARABINE [Suspect]
     Indication: PRODUCT USED FOR UNKNOWN INDICATION
  3. ONDANSETRON [Suspect]
     Indication: PRODUCT USED FOR UNKNOWN INDICATION
     Dates: start: 20080122, end: 20080125
  4. POTASSIUM CHLORIDE [Suspect]
     Indication: PRODUCT USED FOR UNKNOWN INDICATION
     Dosage: 750 MG MILLIGRAM(S), ORAL
     Route: 048
  5. ALLOPURINOL [Suspect]
     Indication: PRODUCT USED FOR UNKNOWN INDICATION
     Dosage: 100 MG MILLIGRAM(S), ORAL
     Route: 048
  6. PANTOPRAZOLE SODIUM [Suspect]
     Indication: PRODUCT USED FOR UNKNOWN INDICATION
     Dosage: 40 MG MILLIGRAM(S)
     Dates: start: 20080122, end: 20080125
  7. NOXAFIL [Suspect]
     Indication: HEPATOSPLENIC CANDIDIASIS
     Dosage: 200 MG MILLIGRAM(S), 1 DAY, ORAL
     Route: 048
     Dates: start: 20071020, end: 20080125
  8. ETOPOSIDE [Suspect]
     Indication: PRODUCT USED FOR UNKNOWN INDICATION
  9. ACYCLOVIR [Suspect]
     Indication: PRODUCT USED FOR UNKNOWN INDICATION
     Dosage: 200 MG MILLIGRAM(S), ORAL
     Route: 048

REACTIONS (6)
  - DRUG INTERACTION [None]
  - SINOATRIAL BLOCK [None]
  - ATRIOVENTRICULAR BLOCK SECOND DEGREE [None]
  - NODAL ARRHYTHMIA [None]
  - SINUS TACHYCARDIA [None]
  - HEPATOSPLENIC CANDIDIASIS [None]
